FAERS Safety Report 10228220 (Version 2)
Quarter: 2014Q3

REPORT INFORMATION
  Report Type: Spontaneous
  Country: US (occurrence: US)
  Receive Date: 20140610
  Receipt Date: 20140915
  Transmission Date: 20150326
  Serious: Yes (Hospitalization, Other)
  Sender: FDA-Public Use
  Company Number: US-BAYER-2014-084792

PATIENT
  Age: 37 Year
  Sex: Female
  Weight: 125.17 kg

DRUGS (3)
  1. MIRENA [Suspect]
     Active Substance: LEVONORGESTREL
     Indication: CONTRACEPTION
     Dosage: 20 MCG/24HR, CONT
     Route: 015
     Dates: start: 20110228
  2. MIRENA [Suspect]
     Active Substance: LEVONORGESTREL
     Indication: MENORRHAGIA
  3. METHYLDOPA. [Concomitant]
     Active Substance: METHYLDOPA
     Indication: PRE-ECLAMPSIA

REACTIONS (15)
  - Drug ineffective [None]
  - High risk pregnancy [None]
  - Pain [None]
  - Mental disorder [None]
  - Affect lability [None]
  - Device issue [None]
  - Anxiety [None]
  - Device dislocation [None]
  - Pregnancy with contraceptive device [None]
  - Complication of pregnancy [None]
  - Injury [None]
  - Infection [None]
  - Menorrhagia [None]
  - Fear [None]
  - Insomnia [None]

NARRATIVE: CASE EVENT DATE: 2013
